FAERS Safety Report 17818819 (Version 6)
Quarter: 2020Q4

REPORT INFORMATION
  Report Type: Report from Study
  Country: US (occurrence: US)
  Receive Date: 20200522
  Receipt Date: 20201221
  Transmission Date: 20210113
  Serious: Yes (Hospitalization)
  Sender: FDA-Public Use
  Company Number: US-EXELIXIS-XL18420029949

PATIENT
  Age: 72 Year
  Sex: Male
  Weight: 63.9 kg

DRUGS (15)
  1. NORCO [Concomitant]
     Active Substance: ACETAMINOPHEN\HYDROCODONE BITARTRATE
  2. NYSTATIN. [Concomitant]
     Active Substance: NYSTATIN
  3. IBUPROFEN. [Concomitant]
     Active Substance: IBUPROFEN
  4. ATEZOLIZUMAB. [Suspect]
     Active Substance: ATEZOLIZUMAB
     Indication: HEAD AND NECK CANCER
     Dosage: 1200 MG, Q3WEEKS
     Route: 042
     Dates: start: 20190402, end: 20200607
  5. ASPIRIN. [Concomitant]
     Active Substance: ASPIRIN
  6. METOPROLOL TARTRATE. [Concomitant]
     Active Substance: METOPROLOL TARTRATE
  7. VITAMIN C [Concomitant]
     Active Substance: ASCORBIC ACID
  8. CLOTRIMAZOLE. [Concomitant]
     Active Substance: CLOTRIMAZOLE
  9. FENOFIBRATE. [Concomitant]
     Active Substance: FENOFIBRATE
  10. FERREX [Concomitant]
     Active Substance: FERRIC POLYSACCHARIDE COMPLEX
  11. OMEPRAZOLE. [Concomitant]
     Active Substance: OMEPRAZOLE
  12. XL184 [Suspect]
     Active Substance: CABOZANTINIB
     Dosage: 20 MG, QD
     Route: 048
     Dates: end: 20200607
  13. LIPITOR [Concomitant]
     Active Substance: ATORVASTATIN CALCIUM
  14. GABAPENTIN. [Concomitant]
     Active Substance: GABAPENTIN
  15. XL184 [Suspect]
     Active Substance: CABOZANTINIB
     Indication: HEAD AND NECK CANCER
     Dosage: 40 MG, QD
     Route: 048
     Dates: start: 20190402

REACTIONS (1)
  - Oropharyngeal candidiasis [Recovered/Resolved with Sequelae]

NARRATIVE: CASE EVENT DATE: 20200512
